FAERS Safety Report 7155448-1 (Version None)
Quarter: 2010Q4

REPORT INFORMATION
  Report Type: 
  Country: None (occurrence: None)
  Receive Date: 20101214
  Receipt Date: 20101206
  Transmission Date: 20110411
  Serious: No
  Sender: FDA-Public Use
  Company Number: US-BIOGENIDEC-2010BI043014

PATIENT
  Age: 43 Year
  Sex: Female

DRUGS (5)
  1. TYSABRI [Suspect]
     Indication: MULTIPLE SCLEROSIS
     Route: 042
     Dates: start: 20060817, end: 20080505
  2. TYSABRI [Suspect]
     Route: 042
     Dates: start: 20080602, end: 20100503
  3. TYSABRI [Suspect]
     Route: 042
     Dates: start: 20100607
  4. AVONEX [Concomitant]
     Indication: MULTIPLE SCLEROSIS
     Route: 030
  5. AVONEX [Concomitant]
     Route: 030
     Dates: start: 20040325, end: 20050801

REACTIONS (3)
  - ASTHENIA [None]
  - FALL [None]
  - MULTIPLE SCLEROSIS [None]
